FAERS Safety Report 7972995-0 (Version None)
Quarter: 2011Q4

REPORT INFORMATION
  Report Type: 
  Country: None (occurrence: None)
  Receive Date: 20111213
  Receipt Date: 20111201
  Transmission Date: 20120403
  Serious: Yes (Hospitalization, Other)
  Sender: FDA-Public Use
  Company Number: AU-BRISTOL-MYERS SQUIBB COMPANY-16265787

PATIENT
  Age: 76 Year
  Sex: Female
  Weight: 58 kg

DRUGS (3)
  1. METHOTREXATE [Concomitant]
  2. ORENCIA [Suspect]
     Indication: RHEUMATOID ARTHRITIS
     Dosage: LAST INFUSION:04JUL11.
     Route: 042
     Dates: start: 20100222
  3. FOLIC ACID [Concomitant]

REACTIONS (3)
  - INFECTION [None]
  - LIMB OPERATION [None]
  - BRONCHIECTASIS [None]
